FAERS Safety Report 15570717 (Version 1)
Quarter: 2018Q4

REPORT INFORMATION
  Report Type: Spontaneous
  Country: US (occurrence: US)
  Receive Date: 20181026
  Receipt Date: 20181026
  Transmission Date: 20190205
  Serious: Yes (Hospitalization)
  Sender: FDA-Public Use
  Company Number: None

PATIENT
  Age: 58 Year
  Sex: Male
  Weight: 80.29 kg

DRUGS (17)
  1. NEURONTIN [Concomitant]
     Active Substance: GABAPENTIN
  2. SENOKOT [Concomitant]
     Active Substance: SENNOSIDES
  3. VIBRAMYCIN [Concomitant]
     Active Substance: DOXYCYCLINE
  4. PREDNISONE. [Concomitant]
     Active Substance: PREDNISONE
  5. PEPCID [Concomitant]
     Active Substance: FAMOTIDINE
  6. BRAO ELLIPTA [Concomitant]
  7. LASIX [Concomitant]
     Active Substance: FUROSEMIDE
  8. SPIRIVA [Concomitant]
     Active Substance: TIOTROPIUM BROMIDE MONOHYDRATE
  9. ALBUTEROL HFA [Concomitant]
     Active Substance: ALBUTEROL SULFATE
  10. DUO-NAB [Concomitant]
  11. DOLOPHINE [Concomitant]
     Active Substance: METHADONE HYDROCHLORIDE
  12. FLOMAX [Concomitant]
     Active Substance: TAMSULOSIN HYDROCHLORIDE
  13. SYNTHROID [Concomitant]
     Active Substance: LEVOTHYROXINE SODIUM
  14. AMLODIPINE [Concomitant]
     Active Substance: AMLODIPINE BESYLATE
  15. THERAGRAN [Concomitant]
     Active Substance: VITAMINS
  16. MAVYRET [Suspect]
     Active Substance: GLECAPREVIR\PIBRENTASVIR
     Indication: HEPATITIS C
     Route: 048
     Dates: start: 20180514, end: 20180718
  17. MELATONIN [Concomitant]
     Active Substance: MELATONIN

REACTIONS (4)
  - Dyspnoea [None]
  - Chronic obstructive pulmonary disease [None]
  - Substance use [None]
  - White blood cell count increased [None]

NARRATIVE: CASE EVENT DATE: 20180716
